FAERS Safety Report 13733293 (Version 1)
Quarter: 2017Q3

REPORT INFORMATION
  Report Type: Spontaneous
  Country: US (occurrence: US)
  Receive Date: 20170707
  Receipt Date: 20170707
  Transmission Date: 20171127
  Serious: No
  Sender: FDA-Public Use
  Company Number: US-ROCHE-1455103

PATIENT
  Age: 85 Year
  Sex: Male

DRUGS (2)
  1. CHLORAMBUCIL [Concomitant]
     Active Substance: CHLORAMBUCIL
     Indication: CHRONIC LYMPHOCYTIC LEUKAEMIA RECURRENT
  2. GAZYVA [Suspect]
     Active Substance: OBINUTUZUMAB
     Indication: CHRONIC LYMPHOCYTIC LEUKAEMIA RECURRENT
     Route: 065

REACTIONS (4)
  - Neutropenia [Unknown]
  - Fatigue [Unknown]
  - Immunosuppression [Unknown]
  - Pneumonia [Unknown]
